FAERS Safety Report 5255290-2 (Version None)
Quarter: 2007Q1

REPORT INFORMATION
  Report Type: 
  Country: None (occurrence: None)
  Receive Date: 20070305
  Receipt Date: 20070222
  Transmission Date: 20070707
  Serious: Yes (Death, Hospitalization)
  Sender: FDA-Public Use
  Company Number: SE-ROCHE-482862

PATIENT
  Age: 28 Year
  Sex: Male

DRUGS (10)
  1. CYMEVENE [Suspect]
     Dosage: REPORTED FORM: POWDER FOR SOLUTION FOR INFUSION. DOSAGE REGIMEN WAS REPORTED AS 2 TIMES 175 MG.
     Route: 042
     Dates: start: 20011211, end: 20011227
  2. CELLCEPT [Suspect]
     Dosage: REPORTED FORM: POWDER FOR CONCENTRATE FOR SOLUTION FOR INFUSION. DOSAGE REGIMEN REPORTED AS 2 TIMES+
     Route: 065
     Dates: start: 20011210, end: 20011214
  3. CELLCEPT [Suspect]
     Dosage: DOSAGE REGIMEN REPORTED AS 2 TIMES 1 G.
     Route: 065
     Dates: start: 20011215, end: 20011227
  4. MERONEM [Concomitant]
  5. AMBISOME [Concomitant]
  6. DIFLUCAN [Concomitant]
  7. PRECORTALON [Concomitant]
  8. BACTRIM [Concomitant]
  9. SANDIMMUNE [Concomitant]
  10. LOSEC [Concomitant]

REACTIONS (1)
  - HYPERBILIRUBINAEMIA [None]
